FAERS Safety Report 8214265-1 (Version None)
Quarter: 2012Q1

REPORT INFORMATION
  Report Type: 
  Country: None (occurrence: None)
  Receive Date: 20120316
  Receipt Date: 20120308
  Transmission Date: 20120608
  Serious: Yes (Other)
  Sender: FDA-Public Use
  Company Number: FR-JNJFOC-20120306243

PATIENT
  Age: 38 Year
  Sex: Female

DRUGS (1)
  1. RISPERDAL [Suspect]
     Indication: PSYCHOTIC DISORDER
     Route: 065
     Dates: start: 20120101

REACTIONS (3)
  - HYPERPROLACTINAEMIA [None]
  - BREAST DISCOMFORT [None]
  - GALACTORRHOEA [None]
